FAERS Safety Report 23419869 (Version 3)
Quarter: 2024Q1

REPORT INFORMATION
  Report Type: Spontaneous
  Country: US (occurrence: US)
  Receive Date: 20240119
  Receipt Date: 20240212
  Transmission Date: 20240410
  Serious: No
  Sender: FDA-Public Use
  Company Number: US-BEH-2024167375

PATIENT
  Sex: Male

DRUGS (4)
  1. HIZENTRA [Suspect]
     Active Substance: HUMAN IMMUNOGLOBULIN G
     Indication: Chronic inflammatory demyelinating polyradiculoneuropathy
     Dosage: 28 GRAM, QW
     Route: 058
  2. CBD KINGS [Concomitant]
  3. HYDROCODONE [Concomitant]
     Active Substance: HYDROCODONE
  4. SUMATRIPTAN [Concomitant]
     Active Substance: SUMATRIPTAN

REACTIONS (5)
  - Malaise [Unknown]
  - Nasopharyngitis [Not Recovered/Not Resolved]
  - No adverse event [Not Recovered/Not Resolved]
  - Product dose omission in error [Not Recovered/Not Resolved]
  - Insurance issue [Not Recovered/Not Resolved]
